FAERS Safety Report 17542616 (Version 1)
Quarter: 2020Q1

REPORT INFORMATION
  Report Type: Spontaneous
  Country: FR (occurrence: FR)
  Receive Date: 20200315
  Receipt Date: 20200315
  Transmission Date: 20200409
  Serious: Yes (Hospitalization)
  Sender: FDA-Public Use
  Company Number: FR-ZYDUS-048625

PATIENT
  Age: 50 Year
  Sex: Female
  Weight: 79 kg

DRUGS (3)
  1. CLOBAZAM. [Suspect]
     Active Substance: CLOBAZAM
     Indication: INTENTIONAL OVERDOSE
     Route: 048
     Dates: start: 20200210, end: 20200210
  2. PARACETAMOL [Suspect]
     Active Substance: ACETAMINOPHEN
     Indication: INTENTIONAL OVERDOSE
     Route: 048
     Dates: start: 20200210, end: 20200210
  3. TRAMADOL. [Suspect]
     Active Substance: TRAMADOL
     Indication: INTENTIONAL OVERDOSE
     Route: 048
     Dates: start: 20200210, end: 20200210

REACTIONS (4)
  - Transaminases increased [Recovering/Resolving]
  - Coma [Recovered/Resolved]
  - Poisoning deliberate [Recovered/Resolved]
  - Hepatic failure [Recovered/Resolved]

NARRATIVE: CASE EVENT DATE: 20200210
